FAERS Safety Report 9619837 (Version 2)
Quarter: 2014Q1

REPORT INFORMATION
  Report Type: Spontaneous
  Country: DE (occurrence: DE)
  Receive Date: 20131014
  Receipt Date: 20140122
  Transmission Date: 20141002
  Serious: Yes (Death)
  Sender: FDA-Public Use
  Company Number: DE-CELGENEUS-062-POMAL-13101575

PATIENT
  Sex: 0

DRUGS (4)
  1. POMALYST [Suspect]
     Indication: PLASMA CELL MYELOMA
     Route: 048
  2. REVLIMID [Suspect]
     Indication: PLASMA CELL MYELOMA
     Route: 048
  3. THALIDOMIDE [Suspect]
     Indication: PLASMA CELL MYELOMA
     Route: 048
  4. BORTEZOMIB [Concomitant]
     Indication: PLASMA CELL MYELOMA
     Route: 065

REACTIONS (1)
  - Death [Fatal]
